FAERS Safety Report 19661472 (Version 4)
Quarter: 2021Q4

REPORT INFORMATION
  Report Type: Report from Study
  Country: US (occurrence: None)
  Receive Date: 20210805
  Receipt Date: 20211123
  Transmission Date: 20220303
  Serious: Yes (Hospitalization, Other)
  Sender: FDA-Public Use
  Company Number: US-MERCK HEALTHCARE KGAA-9255329

PATIENT
  Age: 58 Year
  Sex: Male

DRUGS (1)
  1. MAVENCLAD [Suspect]
     Active Substance: CLADRIBINE
     Indication: Multiple sclerosis
     Dosage: YEAR ONE THERAPY
     Route: 048
     Dates: start: 20200815, end: 20200920

REACTIONS (4)
  - Urinary tract infection [Recovering/Resolving]
  - Urosepsis [Not Recovered/Not Resolved]
  - Urinary retention [Unknown]
  - Hypotonic urinary bladder [Not Recovered/Not Resolved]

NARRATIVE: CASE EVENT DATE: 20210101
